FAERS Safety Report 17409665 (Version 1)
Quarter: 2020Q1

REPORT INFORMATION
  Report Type: Spontaneous
  Country: US (occurrence: US)
  Receive Date: 20200212
  Receipt Date: 20200212
  Transmission Date: 20200409
  Serious: No
  Sender: FDA-Public Use
  Company Number: US-TARO-2019TAR00860

PATIENT
  Age: 71 Year
  Sex: Female
  Weight: 86.17 kg

DRUGS (1)
  1. FLUOCINONIDE TOPICAL SOLUTION USP 0.05% [Suspect]
     Active Substance: FLUOCINONIDE
     Indication: ECZEMA
     Dosage: UNK UNK, ONCE
     Route: 061
     Dates: start: 20191229, end: 20191229

REACTIONS (3)
  - Insomnia [Unknown]
  - Pruritus [Not Recovered/Not Resolved]
  - Skin burning sensation [Recovered/Resolved]

NARRATIVE: CASE EVENT DATE: 20191229
